FAERS Safety Report 5674789-8 (Version None)
Quarter: 2008Q1

REPORT INFORMATION
  Report Type: 
  Country: None (occurrence: None)
  Receive Date: 20080319
  Receipt Date: 20080319
  Transmission Date: 20080703
  Serious: Yes (Death)
  Sender: FDA-Public Use
  Company Number: None

PATIENT
  Age: 28 Year
  Sex: Female
  Weight: 61.2356 kg

DRUGS (2)
  1. ZOLOFT [Suspect]
     Indication: INSOMNIA
     Dosage: 50 MG TO 150 MG
     Dates: start: 20071103, end: 20080112
  2. AMBIEN [Suspect]
     Dates: start: 20071101, end: 20080111

REACTIONS (3)
  - COMPLETED SUICIDE [None]
  - DEPRESSION [None]
  - DRUG EXPOSURE DURING PREGNANCY [None]
